FAERS Safety Report 5258831-4 (Version None)
Quarter: 2007Q1

REPORT INFORMATION
  Report Type: 
  Country: None (occurrence: None)
  Receive Date: 20070308
  Receipt Date: 20070308
  Transmission Date: 20070707
  Serious: Yes (Hospitalization)
  Sender: FDA-Public Use
  Company Number: US-GLAXOSMITHKLINE-A0639816A

PATIENT
  Age: 67 Year
  Sex: Female
  Weight: 51.8 kg

DRUGS (5)
  1. TOPOTECAN [Suspect]
     Indication: SMALL CELL LUNG CANCER STAGE UNSPECIFIED
     Dosage: 6MGM2 CYCLIC
     Route: 042
     Dates: start: 20070130, end: 20070205
  2. CARBOPLATIN [Suspect]
     Indication: SMALL CELL LUNG CANCER STAGE UNSPECIFIED
     Dosage: 327MG CYCLIC
     Route: 042
     Dates: start: 20070130, end: 20070130
  3. SALT [Concomitant]
     Indication: HYPONATRAEMIA
     Dosage: 1TAB PER DAY
     Dates: start: 20061116
  4. LOPRESSOR [Concomitant]
     Indication: HYPERTENSION
     Route: 048
  5. ZOLOFT [Concomitant]
     Indication: ANXIETY
     Dosage: 50MG PER DAY
     Route: 048
     Dates: start: 20061030

REACTIONS (4)
  - CONTUSION [None]
  - FALL [None]
  - PANCYTOPENIA [None]
  - SUBDURAL HAEMATOMA [None]
